FAERS Safety Report 24040897 (Version 1)
Quarter: 2024Q3

REPORT INFORMATION
  Report Type: Spontaneous
  Country: JP (occurrence: JP)
  Receive Date: 20240702
  Receipt Date: 20240702
  Transmission Date: 20241017
  Serious: Yes (Death)
  Sender: BOEHRINGER INGELHEIM
  Company Number: JP-NBI-BJ202408424

PATIENT
  Age: 70 Year
  Sex: Female

DRUGS (1)
  1. OFEV [Suspect]
     Active Substance: NINTEDANIB
     Indication: Interstitial lung disease
     Route: 048
     Dates: start: 20240319, end: 20240507

REACTIONS (5)
  - Death [Fatal]
  - Stomatitis [Unknown]
  - Hypophagia [Recovering/Resolving]
  - Pyrexia [Unknown]
  - Dyspnoea [Not Recovered/Not Resolved]
